FAERS Safety Report 14338908 (Version 7)
Quarter: 2019Q2

REPORT INFORMATION
  Report Type: Spontaneous
  Country: RO (occurrence: RO)
  Receive Date: 20171229
  Receipt Date: 20190422
  Transmission Date: 20190711
  Serious: Yes (Other)
  Sender: FDA-Public Use
  Company Number: RO-KADMON PHARMACEUTICALS, LLC-KAD-201712-01104

PATIENT
  Age: 68 Year
  Sex: Female
  Weight: 54 kg

DRUGS (10)
  1. INULIN [Concomitant]
     Active Substance: INULIN
     Dates: start: 20160309
  2. URSODEOXYCHOLIC ACID [Concomitant]
     Active Substance: URSODIOL
     Dates: start: 20160309
  3. SILYMARIN [Concomitant]
     Active Substance: DIETARY SUPPLEMENT\HERBALS\MILK THISTLE
     Dates: start: 20160309
  4. LACTULOSE. [Concomitant]
     Active Substance: LACTULOSE
     Dates: start: 20160309
  5. RIBAVIRIN. [Suspect]
     Active Substance: RIBAVIRIN
     Indication: HEPATITIS C
     Dosage: 600 MG
     Route: 048
     Dates: start: 20170628, end: 20170719
  6. RIBAVIRIN. [Suspect]
     Active Substance: RIBAVIRIN
     Dosage: 400 MG
     Route: 048
     Dates: start: 20170720, end: 20170912
  7. HARVONI [Suspect]
     Active Substance: LEDIPASVIR\SOFOSBUVIR
     Indication: HEPATITIS C
     Dosage: 1 DOSAGE FORM
     Route: 048
     Dates: start: 20170621, end: 20170912
  8. URSODEOXYCHOLIC ACID [Concomitant]
     Active Substance: URSODIOL
     Dates: start: 20160309
  9. DIUREX [Concomitant]
     Dates: start: 20160309
  10. DIUREX (OSYROL-LASIX) [Concomitant]
     Dates: start: 20160309

REACTIONS (5)
  - Hepatocellular carcinoma [Not Recovered/Not Resolved]
  - Off label use [Recovered/Resolved]
  - Hepatitis C [Not Recovered/Not Resolved]
  - Drug ineffective [Not Recovered/Not Resolved]
  - Haemoglobin decreased [Unknown]

NARRATIVE: CASE EVENT DATE: 2017
